FAERS Safety Report 7942945-1 (Version None)
Quarter: 2011Q4

REPORT INFORMATION
  Report Type: 
  Country: None (occurrence: None)
  Receive Date: 20111128
  Receipt Date: 20111122
  Transmission Date: 20120403
  Serious: Yes (Disabling, Other)
  Sender: FDA-Public Use
  Company Number: US-MERCK-1011USA01579

PATIENT
  Age: 42 Year
  Sex: Female
  Weight: 68 kg

DRUGS (6)
  1. CITRICAL [Concomitant]
     Route: 065
     Dates: start: 20010101
  2. PREMARIN [Concomitant]
     Route: 065
     Dates: start: 19991208, end: 20070319
  3. FOSAMAX [Suspect]
     Route: 048
     Dates: start: 20080217
  4. CENTRUM [Concomitant]
     Route: 065
     Dates: start: 20010101
  5. FOSAMAX [Suspect]
     Indication: OSTEOPOROSIS
     Route: 048
     Dates: start: 20010109, end: 20090319
  6. FOSAMAX [Suspect]
     Indication: OSTEOPENIA
     Route: 048
     Dates: start: 20010109, end: 20090319

REACTIONS (20)
  - FEMUR FRACTURE [None]
  - OVARIAN CYST [None]
  - TOOTH DISORDER [None]
  - ARTHRALGIA [None]
  - LOW TURNOVER OSTEOPATHY [None]
  - PELVIC ADHESIONS [None]
  - FUNGAL INFECTION [None]
  - UTERINE LEIOMYOMA [None]
  - SENSITIVITY OF TEETH [None]
  - URINARY INCONTINENCE [None]
  - INFLAMMATION OF WOUND [None]
  - CARBOHYDRATE ANTIGEN 125 INCREASED [None]
  - BACK PAIN [None]
  - VAGINAL ODOUR [None]
  - OSTEOPOROSIS [None]
  - UTERINE DISORDER [None]
  - ROSACEA [None]
  - STRESS FRACTURE [None]
  - VITAMIN D INCREASED [None]
  - VULVOVAGINAL CANDIDIASIS [None]
